FAERS Safety Report 4710108-9 (Version None)
Quarter: 2005Q2

REPORT INFORMATION
  Report Type: 
  Country: None (occurrence: None)
  Receive Date: 20050629
  Receipt Date: 20050524
  Transmission Date: 20051028
  Serious: No
  Sender: FDA-Public Use
  Company Number: 05P-163-0301303-00

PATIENT
  Age: 76 Year
  Sex: Female

DRUGS (18)
  1. HUMIRA [Suspect]
     Indication: RHEUMATOID ARTHRITIS
     Dosage: 40 MG, 1 IN 2 WK, SUBCUTANEOUS
     Route: 058
     Dates: start: 20050510
  2. METHOTREXATE [Concomitant]
  3. NABUMETONE [Concomitant]
  4. PREDNISONE TAB [Concomitant]
  5. FOLIC ACID [Concomitant]
  6. METOPROLOL SUCCINATE [Concomitant]
  7. LOTREL [Concomitant]
  8. METHADONE [Concomitant]
  9. HYDROCHLOROTHIAZIDE [Concomitant]
  10. LEVOTHYROXINE SODIUM [Concomitant]
  11. SIMVASTATIN [Concomitant]
  12. LEXAPRO [Concomitant]
  13. POTASSIUM CHLORIDE [Concomitant]
  14. CALCIUM WITH VITAMIN D [Concomitant]
  15. MULTI-VITAMINS [Concomitant]
  16. MACROGOL [Concomitant]
  17. POLYCARBOPHIL CALCIUM [Concomitant]
  18. ZELNORM [Concomitant]

REACTIONS (2)
  - INJECTION SITE HAEMORRHAGE [None]
  - PROCEDURAL COMPLICATION [None]
